FAERS Safety Report 7208839-4 (Version None)
Quarter: 2010Q4

REPORT INFORMATION
  Report Type: 
  Country: None (occurrence: None)
  Receive Date: 20101222
  Receipt Date: 20101208
  Transmission Date: 20110411
  Serious: Yes (Death, Life-Threatening)
  Sender: FDA-Public Use
  Company Number: APP201001074

PATIENT
  Age: 26 Year
  Sex: Female
  Weight: 59 kg

DRUGS (5)
  1. ASTRAMORPH PF [Suspect]
     Indication: ANALGESIC THERAPY
     Dosage: SEE IMAGE
     Route: 042
  2. SUFENTANIL [Concomitant]
  3. PROPOFOL [Concomitant]
  4. CEFUROXIE FOR INJECTION, USP (CEFUROXIME SODIUM) [Concomitant]
  5. METRONIDAZOLE [Concomitant]

REACTIONS (4)
  - BRAIN INJURY [None]
  - CARDIAC ARREST [None]
  - HYPOXIA [None]
  - RESPIRATORY DEPRESSION [None]
